FAERS Safety Report 9512231 (Version 1)
Quarter: 2013Q3

REPORT INFORMATION
  Report Type: Report from Study
  Country: BR (occurrence: BR)
  Receive Date: 20130910
  Receipt Date: 20130910
  Transmission Date: 20140515
  Serious: Yes (Other)
  Sender: FDA-Public Use
  Company Number: PHHY2013BR098435

PATIENT
  Age: 65 Year
  Sex: Male
  Weight: 60 kg

DRUGS (7)
  1. BUDESONIDE [Suspect]
     Indication: OBSTRUCTIVE AIRWAYS DISORDER
     Dosage: 800 UG, DAILY
     Dates: start: 2005
  2. BUDESONIDE [Suspect]
     Dosage: 400 UG, DAILY
  3. FORMOTEROL [Suspect]
     Indication: OBSTRUCTIVE AIRWAYS DISORDER
     Dosage: 24 UG, DAILY
     Dates: start: 2005
  4. FORMOTEROL [Suspect]
     Dosage: 12 UG, DAILY
  5. PREDNISONE [Concomitant]
     Indication: OBSTRUCTIVE AIRWAYS DISORDER
     Dosage: 40 MG, DAILY
     Route: 048
     Dates: start: 2005
  6. CICLESONIDE [Concomitant]
     Indication: OBSTRUCTIVE AIRWAYS DISORDER
     Dosage: 160 UG, DAILY
     Dates: start: 2005
  7. MONTELUKAST [Concomitant]
     Indication: OBSTRUCTIVE AIRWAYS DISORDER
     Dosage: 10 MG, DAILY
     Dates: start: 2005

REACTIONS (9)
  - Asthma [Unknown]
  - Obstructive airways disorder [Unknown]
  - Pulmonary function test decreased [Recovering/Resolving]
  - Dyspnoea [Unknown]
  - Tachypnoea [Unknown]
  - Muscle strain [Unknown]
  - Speech disorder [Unknown]
  - Wheezing [Unknown]
  - Cachexia [Unknown]
